FAERS Safety Report 4540701-8 (Version None)
Quarter: 2004Q4

REPORT INFORMATION
  Report Type: 
  Country: None (occurrence: None)
  Receive Date: 20041229
  Receipt Date: 20041222
  Transmission Date: 20050328
  Serious: Yes (Other)
  Sender: FDA-Public Use
  Company Number: 200422384GDDC

PATIENT
  Age: 59 Year
  Sex: Female
  Weight: 158.7 kg

DRUGS (11)
  1. ENOXAPARIN SODIUM [Suspect]
     Indication: DEEP VEIN THROMBOSIS
     Dosage: DOSE: UNK
     Route: 030
     Dates: start: 20041203
  2. AVANDIA [Suspect]
  3. GLYBURIDE [Suspect]
  4. ASPIRIN [Concomitant]
  5. METOPROLOL TARTRATE [Concomitant]
  6. ZOPICLONE [Concomitant]
  7. FERROGRAD [Concomitant]
  8. CAPTOPRIL [Concomitant]
  9. TRAZODONE HCL [Concomitant]
  10. SIMVASTATIN [Concomitant]
  11. BUMETANIDE [Concomitant]

REACTIONS (3)
  - DRUG INTERACTION [None]
  - DRUG INTERACTION POTENTIATION [None]
  - HYPOGLYCAEMIA [None]
